FAERS Safety Report 13908462 (Version 1)
Quarter: 2017Q3

REPORT INFORMATION
  Report Type: Spontaneous
  Country: CH (occurrence: CH)
  Receive Date: 20170826
  Receipt Date: 20170826
  Transmission Date: 20171127
  Serious: Yes (Hospitalization, Other)
  Sender: FDA-Public Use
  Company Number: CH-MYLANLABS-2017M1052366

PATIENT

DRUGS (10)
  1. VENLAFAXIN [Suspect]
     Active Substance: VENLAFAXINE HYDROCHLORIDE
     Indication: PRODUCT USED FOR UNKNOWN INDICATION
     Dosage: NOM DE MARQUE NON CONNUXMAXIMUM 8700 MG RETARD, 1050 MG NORMAL INGERES SUR LA BASE DES PLAQUETTES V
     Route: 048
     Dates: start: 20170122, end: 20170123
  2. TRAMAL [Suspect]
     Active Substance: TRAMADOL
     Indication: HEADACHE
     Dosage: MAXIMUM 500 MG INGERES SUR LA BASE DES PLAQUETTES VIDES
     Route: 048
     Dates: start: 20170122, end: 20170122
  3. IRFEN [Suspect]
     Active Substance: IBUPROFEN
     Indication: HEADACHE
     Dosage: MAXIMUM 1440 MG RETARD PLUS 20600 MG NORMAL INGERES SUR LA BASE DES PLAQUETTES VIDES
     Route: 048
     Dates: start: 20170122, end: 20170122
  4. SIRDALUD [Suspect]
     Active Substance: TIZANIDINE
     Indication: PRODUCT USED FOR UNKNOWN INDICATION
     Dosage: MAXIMUM 56 MG INGERES SUR LA BASE DES PLAQUETTES VIDES
     Route: 048
     Dates: start: 20170122, end: 20170122
  5. DAFALGAN [Suspect]
     Active Substance: ACETAMINOPHEN
     Indication: HEADACHE
     Dosage: MAXIMUM 30 G INGERES SUR LA BASE DES PLAQUETTES VIDES
     Route: 048
     Dates: start: 20170122, end: 20170122
  6. RELPAX [Suspect]
     Active Substance: ELETRIPTAN HYDROBROMIDE
     Indication: PRODUCT USED FOR UNKNOWN INDICATION
     Dosage: MAXIMUM 40 MG INGERES SUR LA BASE DES PLAQUETTES VIDES
     Route: 048
     Dates: start: 20170122, end: 20170122
  7. VENLAFAXIN [Suspect]
     Active Substance: VENLAFAXINE HYDROCHLORIDE
     Dosage: NOM DE MARQUE NON CONNUXMAXIMUM 8700 MG RETARD, 1050 MG NORMAL INGERES SUR LA BASE DES PLAQUETTES V
     Route: 048
     Dates: start: 20170122, end: 20170123
  8. DULOXETINE. [Suspect]
     Active Substance: DULOXETINE
     Indication: PRODUCT USED FOR UNKNOWN INDICATION
     Dosage: MAXIMUM 510 MG INGERES SUR LA BASE DES PLAQUETTES VIDES
     Route: 048
     Dates: start: 20170122, end: 20170122
  9. IRFEN [Suspect]
     Active Substance: IBUPROFEN
     Dosage: MAXIMUM 1440 MG RETARD PLUS 20600 MG NORMAL INGERES SUR LA BASE DES PLAQUETTES VIDES
     Route: 048
     Dates: start: 20170122, end: 20170122
  10. REDORMIN (HUMULUS LUPULUS HOPS\VALERIANA OFFICINALIS ROOT) [Suspect]
     Active Substance: HERBALS\HOPS\VALERIAN
     Indication: PRODUCT USED FOR UNKNOWN INDICATION
     Dosage: MAXIMUM 15 COMPRIMES INGERES SUR LA BASE DES PLAQUETTES VIDES
     Route: 048
     Dates: start: 20170122, end: 20170122

REACTIONS (6)
  - Somnolence [Recovered/Resolved]
  - Confusional state [Recovered/Resolved]
  - Intentional overdose [Recovered/Resolved]
  - Eyelid myoclonus [Recovered/Resolved]
  - Chills [Recovered/Resolved]
  - Mydriasis [Recovered/Resolved]

NARRATIVE: CASE EVENT DATE: 20170122
